FAERS Safety Report 15313455 (Version 6)
Quarter: 2021Q3

REPORT INFORMATION
  Report Type: Spontaneous
  Country: US (occurrence: US)
  Receive Date: 20180824
  Receipt Date: 20210727
  Transmission Date: 20211014
  Serious: Yes (Hospitalization, Other)
  Sender: FDA-Public Use
  Company Number: US-ASTRAZENECA-2018SF04799

PATIENT
  Age: 52 Year
  Sex: Female
  Weight: 101.6 kg

DRUGS (94)
  1. GABAPENTIN. [Concomitant]
     Active Substance: GABAPENTIN
     Route: 048
  2. SYMLIN [Concomitant]
     Active Substance: PRAMLINTIDE ACETATE
     Route: 065
  3. ESZOPICLONE. [Concomitant]
     Active Substance: ESZOPICLONE
     Dates: start: 20191031
  4. TRESIBA [Concomitant]
     Active Substance: INSULIN DEGLUDEC
     Dates: start: 20191231
  5. NAPROSYN [Concomitant]
     Active Substance: NAPROXEN
  6. AMOX?CLAV [Concomitant]
     Active Substance: AMOXICILLIN\CLAVULANATE POTASSIUM
     Route: 048
     Dates: start: 20190206
  7. AMBIEN [Concomitant]
     Active Substance: ZOLPIDEM TARTRATE
     Route: 048
     Dates: start: 20190207
  8. HEPARIN [Concomitant]
     Active Substance: HEPARIN SODIUM
     Route: 048
  9. SYNTHROID [Concomitant]
     Active Substance: LEVOTHYROXINE SODIUM
     Route: 048
     Dates: start: 20190207
  10. NOREPINEPHRINE. [Concomitant]
     Active Substance: NOREPINEPHRINE
     Route: 048
  11. TUMS [Concomitant]
     Active Substance: CALCIUM CARBONATE
     Route: 048
  12. LOTEMAX [Concomitant]
     Active Substance: LOTEPREDNOL ETABONATE
     Route: 048
  13. DEXLANSOPRAZOLE [Suspect]
     Active Substance: DEXLANSOPRAZOLE
     Dosage: GENERIC
     Route: 065
  14. PREVACID [Suspect]
     Active Substance: LANSOPRAZOLE
     Indication: GASTROOESOPHAGEAL REFLUX DISEASE
     Dosage: GENERIC
     Route: 065
     Dates: start: 2010
  15. PREVACID 24 HR [Suspect]
     Active Substance: LANSOPRAZOLE
     Indication: GASTROOESOPHAGEAL REFLUX DISEASE
     Route: 065
     Dates: start: 2009
  16. ZOLPIDEM [Concomitant]
     Active Substance: ZOLPIDEM TARTRATE
     Indication: SLEEP DISORDER
     Route: 048
     Dates: start: 2006
  17. IBUPROFEN. [Concomitant]
     Active Substance: IBUPROFEN
     Indication: PAIN
     Dosage: AS NEEDED
     Route: 048
     Dates: start: 2016
  18. ALPRAZOLAM. [Concomitant]
     Active Substance: ALPRAZOLAM
     Dosage: TAKE 1?2 TABLET BY MOUTH EVERY DAY AS NEEDED
     Route: 048
  19. AMOXICILLIN. [Concomitant]
     Active Substance: AMOXICILLIN
     Route: 048
  20. BACLOFEN. [Concomitant]
     Active Substance: BACLOFEN
  21. LOVENOX [Concomitant]
     Active Substance: ENOXAPARIN SODIUM
     Route: 048
  22. JANUVIA [Concomitant]
     Active Substance: SITAGLIPTIN PHOSPHATE
     Route: 048
  23. MELATONIN [Concomitant]
     Active Substance: MELATONIN
     Route: 048
  24. DOCUSATE [Concomitant]
     Active Substance: DOCUSATE
     Route: 048
  25. PAROXETINE. [Concomitant]
     Active Substance: PAROXETINE
     Route: 048
  26. TOBRAMYCIN. [Concomitant]
     Active Substance: TOBRAMYCIN
     Route: 048
  27. ABEDITEROL. [Concomitant]
     Active Substance: ABEDITEROL
     Route: 048
  28. PRILOSEC [Suspect]
     Active Substance: OMEPRAZOLE MAGNESIUM
     Indication: GASTROOESOPHAGEAL REFLUX DISEASE
     Dosage: GENERIC30.0MG UNKNOWN
     Route: 065
     Dates: start: 200711
  29. PRILOSEC [Suspect]
     Active Substance: OMEPRAZOLE MAGNESIUM
     Indication: GASTROOESOPHAGEAL REFLUX DISEASE
     Dosage: GENERIC30.0MG UNKNOWN
     Route: 065
     Dates: start: 201611
  30. OLMESARTAN [Concomitant]
     Active Substance: OLMESARTAN
     Indication: BLOOD PRESSURE ABNORMAL
     Route: 065
     Dates: start: 2014
  31. POTASSIUM CHLORIDE. [Concomitant]
     Active Substance: POTASSIUM CHLORIDE
     Route: 065
  32. DICYCLOMINE [Concomitant]
     Active Substance: DICYCLOMINE HYDROCHLORIDE
     Route: 048
  33. PREDNISONE. [Concomitant]
     Active Substance: PREDNISONE
     Route: 048
  34. VALSARTAN. [Concomitant]
     Active Substance: VALSARTAN
  35. TIZANIDINE. [Concomitant]
     Active Substance: TIZANIDINE
     Route: 048
  36. PRISTIQ EXTENDED?RELEASE [Concomitant]
     Active Substance: DESVENLAFAXINE SUCCINATE
     Route: 048
  37. QUETIAPINE. [Concomitant]
     Active Substance: QUETIAPINE
     Route: 048
  38. VILAZODONE [Concomitant]
     Active Substance: VILAZODONE
     Route: 048
  39. CANDESARTAN. [Concomitant]
     Active Substance: CANDESARTAN
     Route: 048
  40. LONCASTUXIMAB TESIRINE. [Concomitant]
     Active Substance: LONCASTUXIMAB TESIRINE
     Route: 048
  41. NIASPAN [Concomitant]
     Active Substance: NIACIN
     Route: 048
  42. PREVACID [Suspect]
     Active Substance: LANSOPRAZOLE
     Indication: GASTROOESOPHAGEAL REFLUX DISEASE
     Route: 065
     Dates: start: 2008, end: 2009
  43. PREVACID [Suspect]
     Active Substance: LANSOPRAZOLE
     Indication: GASTROOESOPHAGEAL REFLUX DISEASE
     Dosage: GENERIC
     Route: 048
     Dates: start: 20110221
  44. SIMVASTATIN. [Concomitant]
     Active Substance: SIMVASTATIN
     Indication: BLOOD CHOLESTEROL
     Route: 048
     Dates: start: 1992
  45. CEPHALEXIN. [Concomitant]
     Active Substance: CEPHALEXIN
     Route: 048
  46. METOLAZONE. [Concomitant]
     Active Substance: METOLAZONE
  47. SENNA [Concomitant]
     Active Substance: SENNA LEAF\SENNOSIDES\SENNOSIDES A AND B
     Route: 048
  48. CLONAZEPAM. [Concomitant]
     Active Substance: CLONAZEPAM
     Route: 048
  49. METHYLPREDNISOLONE. [Concomitant]
     Active Substance: METHYLPREDNISOLONE
     Route: 048
  50. DOXYCYCLINE. [Concomitant]
     Active Substance: DOXYCYCLINE
     Route: 048
  51. PRILOSEC [Suspect]
     Active Substance: OMEPRAZOLE MAGNESIUM
     Indication: GASTROOESOPHAGEAL REFLUX DISEASE
     Dosage: 20.0MG UNKNOWN
     Route: 048
     Dates: start: 20071128
  52. LANTUS [Concomitant]
     Active Substance: INSULIN GLARGINE
     Dosage: TAKE 55 UNITS AT EVERY NIGHT AT BEDTIME
     Route: 065
     Dates: start: 2006
  53. FUROSEMIDE. [Concomitant]
     Active Substance: FUROSEMIDE
     Indication: CARDIAC DISORDER
     Route: 048
     Dates: start: 1992
  54. CIPROFLOXACIN. [Concomitant]
     Active Substance: CIPROFLOXACIN
     Route: 048
  55. TRAMADOL. [Concomitant]
     Active Substance: TRAMADOL
     Route: 048
  56. BENZONATATE. [Concomitant]
     Active Substance: BENZONATATE
     Route: 048
     Dates: start: 20190207
  57. CHLORASEPTIC SORE THROAT [Concomitant]
     Active Substance: PHENOL
     Route: 048
  58. OMEGA 3 [Concomitant]
     Active Substance: OMEGA-3 FATTY ACIDS
     Route: 048
  59. TUSSIONEX PENNKINETIC [Concomitant]
     Active Substance: CHLORPHENIRAMINE\HYDROCODONE
     Route: 048
  60. ABILIFY [Concomitant]
     Active Substance: ARIPIPRAZOLE
     Route: 048
  61. ANASTROZOLE. [Concomitant]
     Active Substance: ANASTROZOLE
     Route: 048
  62. NEXIUM 24HR [Suspect]
     Active Substance: ESOMEPRAZOLE MAGNESIUM
     Indication: GASTROOESOPHAGEAL REFLUX DISEASE
     Route: 048
     Dates: start: 1996
  63. PREVACID [Suspect]
     Active Substance: LANSOPRAZOLE
     Indication: GASTROOESOPHAGEAL REFLUX DISEASE
     Dosage: GENERIC
     Route: 065
     Dates: start: 2010
  64. PREVACID 24 HR [Suspect]
     Active Substance: LANSOPRAZOLE
     Indication: GASTROOESOPHAGEAL REFLUX DISEASE
     Route: 065
     Dates: start: 2008, end: 2009
  65. BENICAR [Concomitant]
     Active Substance: OLMESARTAN MEDOXOMIL
  66. ALLOPURINOL. [Concomitant]
     Active Substance: ALLOPURINOL
     Indication: GOUT
     Route: 048
     Dates: start: 2006
  67. NIACIN. [Concomitant]
     Active Substance: NIACIN
     Indication: BLOOD CHOLESTEROL
     Route: 048
     Dates: start: 1992
  68. VITAMIN D [Concomitant]
     Active Substance: VITAMIN D NOS
     Route: 065
     Dates: start: 1992
  69. OXYCODONE?ACETAMINOPHEN [Concomitant]
     Active Substance: ACETAMINOPHEN\OXYCODONE HYDROCHLORIDE
     Dosage: 5?325
     Route: 065
  70. AZITHROMYCIN ANHYDROUS. [Concomitant]
     Active Substance: AZITHROMYCIN ANHYDROUS
     Dosage: TAKE 2 TABLETS BY MOUTH ON DAY 1, THEN TAKE 1 TABLET BY MOUTH DAILY FOR 4 DAYS
     Route: 048
  71. AMLODIPINE BESYLATE. [Concomitant]
     Active Substance: AMLODIPINE BESYLATE
     Route: 048
  72. ONDANSETRON [Concomitant]
     Active Substance: ONDANSETRON
     Dosage: DISSOLVE ONE TABLET BY MOUTH EVERY 6 HOURS AS NEEDED FOR NAUSEA AND VOMITING
     Route: 048
  73. APRESOLINE HYDROCHLORIDE [Concomitant]
     Active Substance: HYDRALAZINE HYDROCHLORIDE
     Route: 048
  74. KENALOG [Concomitant]
     Active Substance: TRIAMCINOLONE ACETONIDE
     Route: 048
  75. CHLOROQUINE PHOSPHATE. [Concomitant]
     Active Substance: CHLOROQUINE PHOSPHATE
     Route: 048
  76. PRILOSEC [Suspect]
     Active Substance: OMEPRAZOLE MAGNESIUM
     Indication: GASTROOESOPHAGEAL REFLUX DISEASE
     Dosage: GENERIC40.0MG UNKNOWN
     Route: 065
     Dates: start: 20161109
  77. COREG [Concomitant]
     Active Substance: CARVEDILOL
     Indication: BLOOD PRESSURE ABNORMAL
     Route: 065
     Dates: start: 2006
  78. ASPIRIN. [Concomitant]
     Active Substance: ASPIRIN
     Indication: PAIN
     Route: 065
     Dates: start: 2014
  79. METRONIDAZOLE. [Concomitant]
     Active Substance: METRONIDAZOLE
     Route: 048
  80. URSODIOL. [Concomitant]
     Active Substance: URSODIOL
     Route: 048
  81. ENOXAPARIN [Concomitant]
     Active Substance: ENOXAPARIN
     Route: 058
  82. AVANDIA [Concomitant]
     Active Substance: ROSIGLITAZONE MALEATE
     Dates: start: 20070320
  83. KETOCONAZOLE. [Concomitant]
     Active Substance: KETOCONAZOLE
     Route: 048
  84. MOVIPREP [Concomitant]
     Active Substance: ASCORBIC ACID\POLYETHYLENE GLYCOL 3350\POTASSIUM CHLORIDE\SODIUM ASCORBATE\SODIUM CHLORIDE\SODIUM SULFATE
     Route: 048
  85. NEXIUM 24HR [Suspect]
     Active Substance: ESOMEPRAZOLE MAGNESIUM
     Indication: GASTROOESOPHAGEAL REFLUX DISEASE
     Route: 048
  86. PREVACID [Suspect]
     Active Substance: LANSOPRAZOLE
     Indication: GASTROOESOPHAGEAL REFLUX DISEASE
     Dosage: DELAYED RELEASE CAPSULE
     Route: 065
  87. NOVOLOG [Concomitant]
     Active Substance: INSULIN ASPART
     Dosage: ADMINISTER 5 UNITS UNDER THE SKIN THREE TIMES DAILY WITH MEALS
     Route: 065
     Dates: start: 2006
  88. METFORMIN [Concomitant]
     Active Substance: METFORMIN HYDROCHLORIDE
     Route: 048
  89. CYCLOBENZAPRINE. [Concomitant]
     Active Substance: CYCLOBENZAPRINE
     Route: 048
  90. PROMETHAZINE [Concomitant]
     Active Substance: PROMETHAZINE HYDROCHLORIDE
  91. NEOSPORIN [Concomitant]
     Active Substance: BACITRACIN ZINC\NEOMYCIN SULFATE\POLYMYXIN B SULFATE
     Route: 048
  92. VIIBRYD [Concomitant]
     Active Substance: VILAZODONE HYDROCHLORIDE
     Route: 048
  93. XYZAL [Concomitant]
     Active Substance: LEVOCETIRIZINE DIHYDROCHLORIDE
     Route: 048
  94. TRIAMCINOLONE [Concomitant]
     Active Substance: TRIAMCINOLONE
     Route: 048

REACTIONS (11)
  - Renal haematoma [Unknown]
  - Renal failure [Unknown]
  - Nephrogenic anaemia [Unknown]
  - Hyperparathyroidism secondary [Unknown]
  - Nephritic syndrome [Unknown]
  - Chronic kidney disease [Not Recovered/Not Resolved]
  - Glomerulonephritis chronic [Unknown]
  - End stage renal disease [Unknown]
  - Renal tubular necrosis [Unknown]
  - Acute kidney injury [Unknown]
  - Tubulointerstitial nephritis [Unknown]

NARRATIVE: CASE EVENT DATE: 2009
